FAERS Safety Report 8788773 (Version 2)
Quarter: 2013Q1

REPORT INFORMATION
  Report Type: Spontaneous
  Country: JP (occurrence: JP)
  Receive Date: 20120917
  Receipt Date: 20130102
  Transmission Date: 20140127
  Serious: Yes (Death)
  Sender: FDA-Public Use
  Company Number: JP-JNJFOC-20120903321

PATIENT
  Age: 8 Decade
  Sex: Male

DRUGS (7)
  1. ONEDURO [Suspect]
     Indication: CANCER PAIN
     Route: 062
     Dates: start: 20120918
  2. ONEDURO [Suspect]
     Indication: CANCER PAIN
     Route: 062
     Dates: start: 20120903, end: 20120917
  3. MORPHINE HYDROCHLORIDE [Suspect]
     Indication: CANCER PAIN
     Route: 048
  4. MORPHINE HYDROCHLORIDE [Suspect]
     Indication: CANCER PAIN
     Dosage: 20-30 MG PER DAY
     Route: 048
     Dates: start: 201207
  5. LOXONIN [Concomitant]
     Indication: CANCER PAIN
     Dosage: 20-30 MG PER DAY
     Route: 065
  6. CALONAL [Concomitant]
     Indication: CANCER PAIN
     Dosage: 20-30 MG PER DAY
     Route: 065
  7. ANHIBA [Concomitant]
     Dosage: 20-30 MG PER DAY
     Route: 054

REACTIONS (3)
  - Malignant peritoneal neoplasm [Fatal]
  - Somnolence [Unknown]
  - Depressed mood [Unknown]
